FAERS Safety Report 7340266-1 (Version None)
Quarter: 2011Q1

REPORT INFORMATION
  Report Type: 
  Country: None (occurrence: None)
  Receive Date: 20110309
  Receipt Date: 20110302
  Transmission Date: 20110831
  Serious: Yes (Hospitalization)
  Sender: FDA-Public Use
  Company Number: AU-BIOGENIDEC-2009BI037003

PATIENT
  Age: 32 Year
  Sex: Female

DRUGS (1)
  1. TYSABRI [Suspect]
     Indication: RELAPSING-REMITTING MULTIPLE SCLEROSIS
     Route: 042
     Dates: start: 20071128, end: 20091112

REACTIONS (5)
  - HISTIOCYTOSIS HAEMATOPHAGIC [None]
  - FATIGUE [None]
  - HYPERSENSITIVITY [None]
  - DYSPNOEA EXERTIONAL [None]
  - APLASTIC ANAEMIA [None]
